FAERS Safety Report 7555123-5 (Version None)
Quarter: 2011Q2

REPORT INFORMATION
  Report Type: 
  Country: None (occurrence: None)
  Receive Date: 20110617
  Receipt Date: 20110614
  Transmission Date: 20111010
  Serious: Yes (Hospitalization)
  Sender: FDA-Public Use
  Company Number: FR-ABBOTT-11P-056-0732167-00

PATIENT
  Sex: Male

DRUGS (5)
  1. PREZISTA [Suspect]
     Indication: HIV INFECTION
     Route: 048
     Dates: start: 20110505, end: 20110516
  2. RITONAVIR [Suspect]
     Indication: HIV INFECTION
     Route: 048
     Dates: start: 20110509, end: 20110516
  3. TRUVADA [Suspect]
     Indication: HIV INFECTION
     Dates: start: 20110509, end: 20110516
  4. ATOVAQUONE [Concomitant]
     Indication: PRODUCT USED FOR UNKNOWN INDICATION
     Dates: start: 20110515
  5. BACTRIM [Suspect]
     Indication: PRODUCT USED FOR UNKNOWN INDICATION
     Route: 048
     Dates: start: 20110505, end: 20110513

REACTIONS (5)
  - FACE OEDEMA [None]
  - ENANTHEMA [None]
  - PALATAL OEDEMA [None]
  - RASH PRURITIC [None]
  - LYMPHADENOPATHY [None]
